FAERS Safety Report 9244998 (Version 3)
Quarter: 2013Q2

REPORT INFORMATION
  Report Type: Spontaneous
  Country: BR (occurrence: BR)
  Receive Date: 20130422
  Receipt Date: 20130529
  Transmission Date: 20140414
  Serious: Yes (Hospitalization, Other)
  Sender: FDA-Public Use
  Company Number: PHHY2013BR013074

PATIENT
  Age: 81 Year
  Sex: Female

DRUGS (13)
  1. EXELON PATCH [Suspect]
     Indication: DEMENTIA ALZHEIMER^S TYPE
     Dosage: 4.6 MG, DAILY (ONE ADHESIVE EACH 24 HOURS)
     Route: 062
     Dates: start: 201208
  2. EXELON PATCH [Suspect]
     Dosage: 9.5 MG, DAILY (ONE ADHESIVE EACH 24 HOURS)
     Route: 062
     Dates: start: 201209
  3. EXELON PATCH [Suspect]
     Dosage: 13.3 MG, DAILY (ONE ADHESIVE EACH 24 HOURS)
     Route: 062
     Dates: start: 201210
  4. CALCIUM CITRATE/VITAMIN D [Suspect]
     Indication: BONE DISORDER
     Dosage: 1 DF, DAILY
  5. ALOIS [Concomitant]
     Dosage: 1 DF, BID (MORNNG AND NIGHT)
     Dates: start: 201209
  6. PROLOPA [Concomitant]
     Indication: PARKINSON^S DISEASE
     Dosage: 2 DF, BID (2 AT MORNING AND 2 AT NIGHT)
  7. SIMVASTATIN [Concomitant]
     Indication: BLOOD CHOLESTEROL INCREASED
     Dosage: 0.5 DF, DAILY (HALF TABLET AT NIGHT)
  8. GLIFAGE [Concomitant]
     Indication: DIABETES MELLITUS
     Dosage: 1 DF, BID (MORNING AND NIGHT)
  9. ENALAPRIL [Concomitant]
     Indication: HYPERTENSION
     Dosage: 1 DF, DAILOY (MORNING)
  10. LOSARTAN [Concomitant]
     Indication: HYPERTENSION
     Dosage: 1 DF, DAILY (AT NIGHT)
  11. VITAMIIN C [Concomitant]
     Indication: INFLUENZA
     Dosage: 1 DF, DAILY
  12. NEOZINE [Concomitant]
     Indication: HALLUCINATION
     Dosage: 1 DF, BID (MORNING AND NIGHT)
     Route: 048
     Dates: start: 201209
  13. LABIRIN [Concomitant]
     Indication: DIZZINESS
     Dosage: 1 DF, DAILY (AT NIGHT)
     Route: 048

REACTIONS (7)
  - Urinary tract infection [Recovered/Resolved]
  - Parkinsonism [Not Recovered/Not Resolved]
  - Gait disturbance [Not Recovered/Not Resolved]
  - Tremor [Not Recovered/Not Resolved]
  - Wound complication [Recovered/Resolved]
  - Skin sensitisation [Recovered/Resolved]
  - Abdominal pain upper [Unknown]
